FAERS Safety Report 12550454 (Version 2)
Quarter: 2016Q3

REPORT INFORMATION
  Report Type: Report from Study
  Country: US (occurrence: US)
  Receive Date: 20160712
  Receipt Date: 20160823
  Transmission Date: 20161109
  Serious: Yes (Death, Hospitalization, Other)
  Sender: FDA-Public Use
  Company Number: US-ACTELION-A-NJ2015-120401

PATIENT
  Age: 72 Year
  Sex: Male

DRUGS (6)
  1. LETAIRIS [Concomitant]
     Active Substance: AMBRISENTAN
  2. VELETRI [Suspect]
     Active Substance: EPOPROSTENOL
     Dosage: 45.4 NG/KG, PER MIN
     Route: 042
     Dates: end: 20160701
  3. SILDENAFIL. [Concomitant]
     Active Substance: SILDENAFIL
  4. OXYGEN. [Concomitant]
     Active Substance: OXYGEN
     Dosage: 8 L, UNK
  5. LASIX [Concomitant]
     Active Substance: FUROSEMIDE
  6. VELETRI [Suspect]
     Active Substance: EPOPROSTENOL
     Indication: PULMONARY ARTERIAL HYPERTENSION
     Dosage: 47.8 NG/KG, PER MIN
     Route: 042
     Dates: start: 20110224

REACTIONS (20)
  - Oedema [Unknown]
  - Fall [Unknown]
  - Foot fracture [Unknown]
  - Malaise [Fatal]
  - Seizure [Unknown]
  - Pulmonary arterial hypertension [Fatal]
  - Pruritus [Unknown]
  - Nasal congestion [Unknown]
  - Bilevel positive airway pressure [Unknown]
  - Condition aggravated [Fatal]
  - Dyspnoea [Unknown]
  - Syncope [Unknown]
  - Cardiac failure congestive [Unknown]
  - Back pain [Unknown]
  - Diarrhoea [Unknown]
  - Disease progression [Fatal]
  - Fluid retention [Unknown]
  - Incontinence [Unknown]
  - Pain in jaw [Unknown]
  - Blood pressure decreased [Unknown]

NARRATIVE: CASE EVENT DATE: 20160319
